FAERS Safety Report 25374849 (Version 1)
Quarter: 2025Q2

REPORT INFORMATION
  Report Type: Spontaneous
  Country: US (occurrence: None)
  Receive Date: 20250529
  Receipt Date: 20250529
  Transmission Date: 20250716
  Serious: Yes (Other)
  Sender: FDA-CTU
  Company Number: None

PATIENT
  Sex: Female
  Weight: 42.75 kg

DRUGS (11)
  1. CHILDRENS XYZAL ALLERGY 24HR [Suspect]
     Active Substance: LEVOCETIRIZINE DIHYDROCHLORIDE
     Indication: Seasonal allergy
     Route: 048
  2. CLONIDINE [Concomitant]
     Active Substance: CLONIDINE
  3. VYVANSE [Concomitant]
     Active Substance: LISDEXAMFETAMINE DIMESYLATE
  4. SPIRONOLACTONE [Concomitant]
     Active Substance: SPIRONOLACTONE
  5. MONTELUKAST [Concomitant]
     Active Substance: MONTELUKAST
  6. Drospirenone/Ethinyl [Concomitant]
  7. ESTRADIOL [Concomitant]
     Active Substance: ESTRADIOL
  8. WINLEVI [Concomitant]
     Active Substance: CLASCOTERONE
  9. TRETINOIN [Concomitant]
     Active Substance: TRETINOIN
  10. B12 [Concomitant]
  11. FIBER THERAPY (CALCIUM POLYCARBOPHIL) [Concomitant]
     Active Substance: CALCIUM POLYCARBOPHIL

REACTIONS (4)
  - Pruritus [None]
  - Burning sensation [None]
  - Scratch [None]
  - Withdrawal syndrome [None]
